FAERS Safety Report 10162980 (Version 1)
Quarter: 2014Q2

REPORT INFORMATION
  Report Type: Spontaneous
  Country: US (occurrence: US)
  Receive Date: 20140509
  Receipt Date: 20140509
  Transmission Date: 20141212
  Serious: No
  Sender: FDA-Public Use
  Company Number: US-PFIZER INC-2014128671

PATIENT
  Age: 56 Year
  Sex: Female
  Weight: 57 kg

DRUGS (1)
  1. XELJANZ [Suspect]
     Indication: RHEUMATOID ARTHRITIS
     Dosage: 5 MG, 2X/DAY
     Dates: start: 201404

REACTIONS (2)
  - Drug ineffective [Not Recovered/Not Resolved]
  - Musculoskeletal pain [Not Recovered/Not Resolved]
